FAERS Safety Report 23502715 (Version 1)
Quarter: 2024Q1

REPORT INFORMATION
  Report Type: Spontaneous
  Country: US (occurrence: US)
  Receive Date: 20240208
  Receipt Date: 20240208
  Transmission Date: 20240410
  Serious: No
  Sender: FDA-Public Use
  Company Number: US-INTRA-CELLULAR THERAPIES, INC.-2023ICT00882

PATIENT
  Age: 32 Year
  Sex: Female

DRUGS (8)
  1. CAPLYTA [Suspect]
     Active Substance: LUMATEPERONE
     Indication: Anxiety
     Dosage: 42 MG, 1X/DAY
     Dates: start: 2022, end: 202305
  2. CAPLYTA [Suspect]
     Active Substance: LUMATEPERONE
     Indication: Confusional state
     Dosage: 42 MG, 1X/DAY WITH 21 MG; TOTAL 63 MG DAILY
     Dates: start: 202305
  3. CAPLYTA [Suspect]
     Active Substance: LUMATEPERONE
     Indication: Fear
  4. CAPLYTA [Suspect]
     Active Substance: LUMATEPERONE
     Indication: Post-traumatic stress disorder
  5. CAPLYTA [Suspect]
     Active Substance: LUMATEPERONE
     Indication: Anxiety
     Dosage: 21 MG, 1X/DAY WITH 42 MG; TOTAL 63 MG DAILY
     Dates: start: 202305
  6. CAPLYTA [Suspect]
     Active Substance: LUMATEPERONE
     Indication: Confusional state
  7. CAPLYTA [Suspect]
     Active Substance: LUMATEPERONE
     Indication: Fear
  8. CAPLYTA [Suspect]
     Active Substance: LUMATEPERONE
     Indication: Post-traumatic stress disorder

REACTIONS (5)
  - Distractibility [Not Recovered/Not Resolved]
  - Feeling abnormal [Not Recovered/Not Resolved]
  - Drug ineffective [Not Recovered/Not Resolved]
  - Off label use [Not Recovered/Not Resolved]
  - Muscle spasms [Not Recovered/Not Resolved]
